FAERS Safety Report 9095920 (Version 2)
Quarter: 2013Q1

REPORT INFORMATION
  Report Type: Spontaneous
  Country: CZ (occurrence: CZ)
  Receive Date: 20130219
  Receipt Date: 20130307
  Transmission Date: 20140127
  Serious: Yes (Life-Threatening, Hospitalization, Other)
  Sender: FDA-Public Use
  Company Number: CZ-ACTELION-A-CH2013-79249

PATIENT
  Age: 56 Year
  Sex: Female

DRUGS (8)
  1. TRACLEER [Suspect]
     Indication: SKIN ULCER
     Dosage: 125 MG, BID
     Route: 048
     Dates: start: 20120726, end: 20130129
  2. TRACLEER [Suspect]
     Dosage: 62.5 MG, BID
     Route: 048
     Dates: start: 20120626, end: 20120725
  3. PREDNISONE [Concomitant]
  4. METHOTREXATE [Concomitant]
  5. ACIDUM FOLICUM [Concomitant]
  6. PERITOL [Concomitant]
  7. MIRZATEN [Concomitant]
  8. HELICID [Concomitant]

REACTIONS (1)
  - Breast cancer female [Not Recovered/Not Resolved]
